FAERS Safety Report 8362476-7 (Version None)
Quarter: 2012Q2

REPORT INFORMATION
  Report Type: 
  Country: None (occurrence: None)
  Receive Date: 20120514
  Receipt Date: 20120514
  Transmission Date: 20120825
  Serious: Yes (Disabling, Other)
  Sender: FDA-Public Use
  Company Number: None

PATIENT
  Age: 32 Year
  Sex: Female
  Weight: 58.9676 kg

DRUGS (2)
  1. HALDOL [Suspect]
     Dosage: 5MG ONCE UNK
     Dates: start: 20050912, end: 20050913
  2. PAXIL [Suspect]
     Indication: DEPRESSION
     Dosage: 10MG NIGHTLY UNK
     Dates: start: 20050904, end: 20051010

REACTIONS (6)
  - ABNORMAL BEHAVIOUR [None]
  - MALAISE [None]
  - MATERNAL EXPOSURE DURING PREGNANCY [None]
  - SPEECH DISORDER DEVELOPMENTAL [None]
  - MATERNAL DRUGS AFFECTING FOETUS [None]
  - ATTENTION DEFICIT/HYPERACTIVITY DISORDER [None]
